FAERS Safety Report 13994265 (Version 1)
Quarter: 2017Q3

REPORT INFORMATION
  Report Type: Spontaneous
  Country: JP (occurrence: JP)
  Receive Date: 20170920
  Receipt Date: 20170920
  Transmission Date: 20171128
  Serious: Yes (Other)
  Sender: FDA-Public Use
  Company Number: JP-GILEAD-2017-0293482

PATIENT
  Sex: Male

DRUGS (4)
  1. ZEFIX [Concomitant]
     Active Substance: LAMIVUDINE
     Indication: HEPATITIS B
     Dosage: UNK
     Dates: start: 2005
  2. HEPSERA [Suspect]
     Active Substance: ADEFOVIR DIPIVOXIL
     Dosage: UNK, QOD
     Route: 065
     Dates: end: 201506
  3. VIREAD [Suspect]
     Active Substance: TENOFOVIR DISOPROXIL FUMARATE
     Indication: HEPATITIS B
     Dosage: UNK
     Route: 065
     Dates: start: 201506
  4. HEPSERA [Suspect]
     Active Substance: ADEFOVIR DIPIVOXIL
     Indication: HEPATITIS B
     Dosage: UNK
     Route: 065
     Dates: start: 200909

REACTIONS (3)
  - Renal impairment [Unknown]
  - Ankle fracture [Unknown]
  - Foot fracture [Unknown]

NARRATIVE: CASE EVENT DATE: 201210
